FAERS Safety Report 9174544 (Version 1)
Quarter: 2013Q1

REPORT INFORMATION
  Report Type: Spontaneous
  Country: US (occurrence: None)
  Receive Date: 20130313
  Receipt Date: 20130313
  Transmission Date: 20140127
  Serious: Yes (Other)
  Sender: FDA-Public Use
  Company Number: 2013SUN00297

PATIENT
  Age: 67 Year
  Sex: Male

DRUGS (10)
  1. SERTRALINE 25 MG NOT AVAILABLE [Suspect]
     Indication: DEPRESSION
     Dosage: 25 MG EVERY MORNING, UNKNOWN
  2. SERTRALINE 25 MG NOT AVAILABLE [Suspect]
     Dosage: 25 MG EVERY MORNING, UNKNOWN
  3. DULOXETINE [Suspect]
  4. AMLODIPINE (AMLODIPINE) [Suspect]
  5. ROSUVASTATIN (ROSUVASTATIN) [Suspect]
  6. ALPRAZOLAM [Concomitant]
  7. METOPROLO [Concomitant]
  8. HYDROCHLOROTHIAZIDE/TRIAMTERENE [Concomitant]
  9. MELFORMIN [Concomitant]
  10. SITAGLIPTIN [Concomitant]

REACTIONS (4)
  - Drug interaction [None]
  - Gynaecomastia [None]
  - Blood glucose increased [None]
  - Hypogonadism [None]
